FAERS Safety Report 24337486 (Version 5)
Quarter: 2025Q2

REPORT INFORMATION
  Report Type: Report from Study
  Country: US (occurrence: US)
  Receive Date: 20240919
  Receipt Date: 20250414
  Transmission Date: 20250716
  Serious: Yes (Hospitalization, Other)
  Sender: ABBVIE
  Company Number: US-ABBVIE-5925052

PATIENT
  Age: 74 Year
  Sex: Female

DRUGS (1)
  1. HUMIRA [Suspect]
     Active Substance: ADALIMUMAB
     Indication: Crohn^s disease
     Route: 058
     Dates: start: 20130413, end: 20241216

REACTIONS (13)
  - Intestinal obstruction [Not Recovered/Not Resolved]
  - Cataract [Unknown]
  - Mobility decreased [Unknown]
  - Stoma site abscess [Unknown]
  - Escherichia sepsis [Unknown]
  - Weight increased [Unknown]
  - Fatigue [Unknown]
  - Asthenia [Unknown]
  - Stoma site reaction [Unknown]
  - Infection [Unknown]
  - Emotional disorder [Unknown]
  - Arthritis [Unknown]
  - Embedded device [Unknown]

NARRATIVE: CASE EVENT DATE: 20240601
